FAERS Safety Report 21241717 (Version 1)
Quarter: 2022Q3

REPORT INFORMATION
  Report Type: Spontaneous
  Country: RU (occurrence: None)
  Receive Date: 20220823
  Receipt Date: 20220823
  Transmission Date: 20221027
  Serious: Yes (Hospitalization, Other)
  Sender: FDA-Public Use
  Company Number: RU-ROCHE-3164113

PATIENT
  Age: 38 Year
  Sex: Female

DRUGS (6)
  1. VEMURAFENIB [Suspect]
     Active Substance: VEMURAFENIB
     Indication: Malignant melanoma
     Route: 065
  2. VEMURAFENIB [Suspect]
     Active Substance: VEMURAFENIB
     Indication: Metastases to lymph nodes
  3. COBIMETINIB [Suspect]
     Active Substance: COBIMETINIB
     Indication: Malignant melanoma
     Route: 065
  4. COBIMETINIB [Suspect]
     Active Substance: COBIMETINIB
     Indication: Metastases to lymph nodes
  5. DABRAFENIB [Concomitant]
     Active Substance: DABRAFENIB
  6. TRAMETINIB [Concomitant]
     Active Substance: TRAMETINIB

REACTIONS (7)
  - Drug reaction with eosinophilia and systemic symptoms [Unknown]
  - Skin toxicity [Unknown]
  - Toxicity to various agents [Unknown]
  - Pyrexia [Unknown]
  - Nausea [Unknown]
  - Vomiting [Unknown]
  - Swelling face [Unknown]

NARRATIVE: CASE EVENT DATE: 20200801
